APPROVED DRUG PRODUCT: OGEN 5
Active Ingredient: ESTROPIPATE
Strength: 6MG
Dosage Form/Route: TABLET;ORAL
Application: A083220 | Product #004
Applicant: PFIZER INC
Approved: Approved Prior to Jan 1, 1982 | RLD: Yes | RS: No | Type: RX